FAERS Safety Report 14603929 (Version 1)
Quarter: 2018Q1

REPORT INFORMATION
  Report Type: Spontaneous
  Country: US (occurrence: US)
  Receive Date: 20180305
  Receipt Date: 20180305
  Transmission Date: 20180509
  Serious: No
  Sender: FDA-Public Use
  Company Number: None

PATIENT
  Age: 71 Year
  Sex: Male
  Weight: 112.8 kg

DRUGS (1)
  1. OPTISON PERFLUTREN PROTEIN-TYPE A MICROSPHERES [Suspect]
     Active Substance: HUMAN ALBUMIN MICROSPHERES
     Indication: ECHOCARDIOGRAM
     Route: 042
     Dates: start: 20180305, end: 20180305

REACTIONS (2)
  - Product quality issue [None]
  - Therapy non-responder [None]

NARRATIVE: CASE EVENT DATE: 20180305
